FAERS Safety Report 7867962-1 (Version None)
Quarter: 2011Q4

REPORT INFORMATION
  Report Type: 
  Country: None (occurrence: None)
  Receive Date: 20111028
  Receipt Date: 20111025
  Transmission Date: 20120403
  Serious: Yes (Other)
  Sender: FDA-Public Use
  Company Number: IN-ROXANE LABORATORIES, INC.-2011-RO-01533RO

PATIENT
  Age: 45 Year
  Sex: Female
  Weight: 66 kg

DRUGS (4)
  1. EPINEPHRINE [Suspect]
     Indication: ANAESTHESIA
  2. MIDAZOLAM HCL [Suspect]
     Indication: SEDATION
     Dosage: 1 MG
     Route: 042
  3. BUPIVACAINE HCL [Suspect]
     Indication: ANAESTHESIA
     Dosage: 75 MG
  4. LIDOCAINE [Suspect]
     Indication: ANAESTHESIA
     Dosage: 300 MG

REACTIONS (3)
  - VOCAL CORD PARALYSIS [None]
  - STRIDOR [None]
  - RESPIRATORY DISTRESS [None]
